FAERS Safety Report 8855717 (Version 1)
Quarter: 2012Q4

REPORT INFORMATION
  Report Type: Spontaneous
  Country: US (occurrence: None)
  Receive Date: 20121019
  Receipt Date: 20121019
  Transmission Date: 20130627
  Serious: Yes (Other)
  Sender: FDA-Public Use
  Company Number: None

PATIENT
  Age: 51 Year
  Sex: Female
  Weight: 50 kg

DRUGS (3)
  1. AMPYRA [Suspect]
     Indication: RELAPSING-REMITTING MULTIPLE SCLEROSIS
     Dosage: 10 mg bid po
     Route: 048
     Dates: start: 201106, end: 201108
  2. AMPYRA [Suspect]
     Indication: GAIT ABNORMAL
     Dosage: 10 mg bid po
     Route: 048
     Dates: start: 201106, end: 201108
  3. AVONEX [Suspect]
     Dosage: 30 mcg once a week IM
     Route: 030
     Dates: start: 201011, end: 201101

REACTIONS (3)
  - Skin hyperpigmentation [None]
  - Lichen planus [None]
  - Drug eruption [None]
